FAERS Safety Report 23784156 (Version 1)
Quarter: 2024Q2

REPORT INFORMATION
  Report Type: Report from Study
  Country: IN (occurrence: IN)
  Receive Date: 20240425
  Receipt Date: 20240425
  Transmission Date: 20240716
  Serious: Yes (Death, Other)
  Sender: FDA-Public Use
  Company Number: IN-CIPLA LTD.-2024IN03744

PATIENT

DRUGS (11)
  1. TORSEMIDE [Suspect]
     Active Substance: TORSEMIDE
     Indication: Product used for unknown indication
     Dosage: DOSE AND FREQUENCY OF 1 (UNSPECIFIED UNITS)
     Route: 048
  2. METOPROLOL SUCCINATE [Suspect]
     Active Substance: METOPROLOL SUCCINATE
     Indication: Product used for unknown indication
     Dosage: DOSE AND FREQUENCY OF 1 (UNSPECIFIED UNITS)
     Route: 048
  3. ANGISPAN TR [Concomitant]
     Indication: Product used for unknown indication
     Dosage: 6.4 MILLIGRAM, BID (8AM-4 PM)
     Route: 065
  4. CYTOGARD [Concomitant]
     Indication: Product used for unknown indication
     Dosage: UNK, QD (8AM OD)
     Route: 065
  5. NIKORAN [Concomitant]
     Indication: Product used for unknown indication
     Dosage: 5 MILLIGRAM, BID
     Route: 065
  6. ROSEDAY F [Concomitant]
     Indication: Product used for unknown indication
     Dosage: UNK (20)
     Route: 065
  7. FOLVITE [Concomitant]
     Active Substance: FOLIC ACID
     Indication: Product used for unknown indication
     Dosage: 5 MILLIGRAM, QD (OD)
     Route: 065
  8. ASPIRIN [Concomitant]
     Active Substance: ASPIRIN
     Indication: Product used for unknown indication
     Dosage: 75 MILLIGRAM, QD (8PM-OD)
     Route: 065
  9. REPAGLINIDE [Concomitant]
     Active Substance: REPAGLINIDE
     Indication: Product used for unknown indication
     Dosage: 0.5 MILLIGRAM, BID
     Route: 065
  10. ZILAST [Concomitant]
     Indication: Product used for unknown indication
     Dosage: 50 MILLIGRAM, BID
     Route: 065
  11. ISOLAZINE [Concomitant]
     Indication: Product used for unknown indication
     Dosage: UNK, BID (1/2-1/2)
     Route: 065

REACTIONS (1)
  - Myocardial infarction [Fatal]

NARRATIVE: CASE EVENT DATE: 20240124
